FAERS Safety Report 13703437 (Version 3)
Quarter: 2018Q3

REPORT INFORMATION
  Report Type: Spontaneous
  Country: US (occurrence: US)
  Receive Date: 20170629
  Receipt Date: 20180814
  Transmission Date: 20181010
  Serious: Yes (Other)
  Sender: FDA-Public Use
  Company Number: US-ELI_LILLY_AND_COMPANY-US201706009082

PATIENT
  Age: 59 Year
  Sex: Female

DRUGS (8)
  1. VICTOZA [Concomitant]
     Active Substance: LIRAGLUTIDE
     Indication: TYPE 2 DIABETES MELLITUS
     Dosage: 1.8 MG, UNKNOWN
  2. HUMULIN R [Suspect]
     Active Substance: INSULIN HUMAN
     Dosage: 24 U, PRN
     Route: 058
  3. HUMULIN R U?500 [Suspect]
     Active Substance: INSULIN HUMAN
     Indication: TYPE 2 DIABETES MELLITUS
     Dosage: 60 U, UNK
     Route: 065
  4. NOVOLOG [Suspect]
     Active Substance: INSULIN ASPART
     Indication: TYPE 2 DIABETES MELLITUS
     Dosage: UNK, UNKNOWN
     Route: 065
  5. JARDIANCE [Suspect]
     Active Substance: EMPAGLIFLOZIN
     Indication: PRODUCT USED FOR UNKNOWN INDICATION
     Dosage: UNK, UNKNOWN
     Route: 065
  6. HUMULIN R [Suspect]
     Active Substance: INSULIN HUMAN
     Indication: TYPE 2 DIABETES MELLITUS
     Dosage: 24 U, PRN
     Route: 058
  7. TRULICITY [Suspect]
     Active Substance: DULAGLUTIDE
     Indication: TYPE 2 DIABETES MELLITUS
     Dosage: 0.75 MG, WEEKLY (1/W)
     Route: 058
  8. COUMADIN [Suspect]
     Active Substance: WARFARIN SODIUM
     Indication: COAGULOPATHY
     Dosage: UNK, UNKNOWN
     Route: 065

REACTIONS (46)
  - Gastrointestinal disorder [Unknown]
  - Drug hypersensitivity [Recovered/Resolved]
  - Aphasia [Unknown]
  - Arteriosclerosis [Unknown]
  - Pruritus [Not Recovered/Not Resolved]
  - Blister [Unknown]
  - Blister infected [Unknown]
  - Joint lock [Unknown]
  - Diarrhoea [Unknown]
  - Incorrect dose administered [Unknown]
  - Coagulopathy [Not Recovered/Not Resolved]
  - Cataract [Not Recovered/Not Resolved]
  - Skin atrophy [Not Recovered/Not Resolved]
  - Depression [Unknown]
  - Dysphemia [Unknown]
  - Dyspnoea exertional [Unknown]
  - Drug resistance [Unknown]
  - Tremor [Recovered/Resolved]
  - Urticaria [Unknown]
  - Chronic kidney disease [Not Recovered/Not Resolved]
  - Macular degeneration [Not Recovered/Not Resolved]
  - Thrombosis [Unknown]
  - Visual impairment [Not Recovered/Not Resolved]
  - Impaired healing [Not Recovered/Not Resolved]
  - Sleep disorder due to general medical condition, insomnia type [Not Recovered/Not Resolved]
  - Eye swelling [Unknown]
  - Blood glucose increased [Not Recovered/Not Resolved]
  - Peripheral swelling [Unknown]
  - Vomiting [Unknown]
  - Incorrect dose administered [Recovered/Resolved]
  - Memory impairment [Unknown]
  - Blood glucose increased [Unknown]
  - Stress [Unknown]
  - Infected skin ulcer [Unknown]
  - Nausea [Unknown]
  - Insomnia [Not Recovered/Not Resolved]
  - Skin ulcer [Unknown]
  - Overweight [Unknown]
  - Blood glucose increased [Unknown]
  - Rash [Recovered/Resolved]
  - Drug ineffective [Unknown]
  - Blood glucose increased [Recovered/Resolved]
  - Drug hypersensitivity [Recovered/Resolved]
  - Neuropathy peripheral [Not Recovered/Not Resolved]
  - Skin injury [Not Recovered/Not Resolved]
  - Blood glucose decreased [Unknown]

NARRATIVE: CASE EVENT DATE: 2012
